FAERS Safety Report 7605875-0 (Version None)
Quarter: 2011Q3

REPORT INFORMATION
  Report Type: 
  Country: None (occurrence: None)
  Receive Date: 20110713
  Receipt Date: 20110701
  Transmission Date: 20111222
  Serious: Yes (Death, Life-Threatening, Other)
  Sender: FDA-Public Use
  Company Number: JP-PFIZER INC-2009287707

PATIENT
  Age: 65 Year
  Sex: Male
  Weight: 64 kg

DRUGS (22)
  1. CAMPTOSAR [Suspect]
     Indication: GASTRIC CANCER
     Dosage: 247.5 MG (149.1 MG/M2)
     Route: 041
     Dates: start: 20090727, end: 20090907
  2. BROMHEXINE HYDROCHLORIDE [Concomitant]
     Indication: PRODUCTIVE COUGH
     Dosage: 4 MG, 2X/DAY
     Route: 042
     Dates: start: 20090927, end: 20091105
  3. MIDAZOLAM [Concomitant]
     Indication: SEDATION
     Dosage: UNK
     Route: 042
     Dates: start: 20091020
  4. ETODOLAC [Concomitant]
     Indication: ANALGESIC THERAPY
     Dosage: 200 MG, 2X/DAY
     Route: 048
     Dates: start: 20090724, end: 20090918
  5. DEXAMETHASONE SODIUM PHOSPHATE [Concomitant]
     Indication: PREMEDICATION
     Dosage: 8 MG, UNK
     Route: 041
     Dates: start: 20090727, end: 20090907
  6. NEUTROGIN [Concomitant]
     Indication: LEUKOPENIA
     Dosage: 100 UG, UNK
     Route: 058
     Dates: start: 20090919, end: 20091012
  7. HUMULIN R [Concomitant]
     Indication: HYPERGLYCAEMIA
     Dosage: UNK
     Route: 058
     Dates: start: 20090919, end: 20091107
  8. FAMOTIDINE [Concomitant]
     Indication: PROPHYLAXIS
     Dosage: UNK
     Route: 041
     Dates: start: 20090919, end: 20090929
  9. SOLACET F [Concomitant]
     Indication: FLUID REPLACEMENT
     Dosage: UNK-500-UNKML  UNK-SID-UNK
     Route: 041
     Dates: start: 20090924, end: 20091101
  10. PROBITOR [Concomitant]
     Indication: LUNG DISORDER
     Dosage: 1000 MG, UNK
     Route: 041
     Dates: start: 20090921, end: 20091106
  11. LENDORMIN [Concomitant]
     Indication: SEDATION
     Dosage: UNK
     Route: 048
     Dates: start: 20091026
  12. RED BLOOD CELLS, CONCENTRATED [Concomitant]
     Dosage: 4 IU, UNK
     Route: 041
     Dates: start: 20091016, end: 20091016
  13. OXYCONTIN [Concomitant]
     Indication: ANALGESIC THERAPY
     Dosage: 5 MG, 2X/DAY
     Route: 048
     Dates: start: 20090724, end: 20090918
  14. DESMOPRESSIN [Concomitant]
     Indication: DIABETES INSIPIDUS
     Dosage: 10 UG, UNK
     Route: 045
     Dates: start: 20090929, end: 20091105
  15. PREDNISOLONE [Concomitant]
     Dosage: 60 MG, UNK
     Route: 048
     Dates: start: 20091009
  16. FOY [Concomitant]
     Indication: PROTHROMBIN TIME PROLONGED
     Dosage: UNK
     Route: 041
     Dates: start: 20090921
  17. TS-1 [Suspect]
     Indication: GASTRIC CANCER
     Dosage: 60 MG, 2X/DAY
     Route: 048
     Dates: start: 20090727, end: 20090918
  18. DECADRON [Suspect]
     Indication: PROPHYLAXIS OF NAUSEA AND VOMITING
     Dosage: UNK
     Route: 048
     Dates: start: 20090731, end: 20090918
  19. KYTRIL [Concomitant]
     Indication: PREMEDICATION
     Dosage: 3 MG, UNK
     Route: 041
     Dates: start: 20090727, end: 20090907
  20. ELASPOL [Concomitant]
     Indication: LUNG DISORDER
     Dosage: 300 MG, UNK
     Route: 041
     Dates: start: 20090919, end: 20091106
  21. ALBUMINAR [Concomitant]
     Indication: BLOOD ALBUMIN
     Dosage: UNK - 50 ML  UNK-SID
     Route: 041
     Dates: start: 20090921, end: 20091016
  22. SEDAPAIN [Concomitant]
     Indication: SEDATION
     Dosage: UNK
     Dates: start: 20091020

REACTIONS (5)
  - THROMBOCYTOPENIA [None]
  - HAEMOGLOBIN DECREASED [None]
  - LEUKOPENIA [None]
  - SEPTIC SHOCK [None]
  - PNEUMOCYSTIS JIROVECI PNEUMONIA [None]
